FAERS Safety Report 10278744 (Version 2)
Quarter: 2014Q3

REPORT INFORMATION
  Report Type: Spontaneous
  Country: GB (occurrence: GB)
  Receive Date: 20140705
  Receipt Date: 20140711
  Transmission Date: 20150326
  Serious: Yes (Hospitalization, Other)
  Sender: FDA-Public Use
  Company Number: GB-ABBVIE-14K-167-1255303-00

PATIENT
  Sex: Female

DRUGS (2)
  1. PHENYTOIN. [Suspect]
     Active Substance: PHENYTOIN
     Indication: CONVULSION
     Dates: start: 1983
  2. EPILIM [Suspect]
     Active Substance: VALPROATE SODIUM
     Indication: CONVULSION
     Dates: start: 1984

REACTIONS (3)
  - Drug level fluctuating [Unknown]
  - Convulsion [Unknown]
  - Feeling abnormal [Unknown]

NARRATIVE: CASE EVENT DATE: 2010
